FAERS Safety Report 18239046 (Version 1)
Quarter: 2020Q3

REPORT INFORMATION
  Report Type: Report from Study
  Country: CA (occurrence: CA)
  Receive Date: 20200907
  Receipt Date: 20200907
  Transmission Date: 20201103
  Serious: Yes (Other)
  Sender: FDA-Public Use
  Company Number: CA-JNJFOC-20200516423

PATIENT
  Age: 36 Year
  Sex: Male
  Weight: 65.9 kg

DRUGS (1)
  1. REMICADE [Suspect]
     Active Substance: INFLIXIMAB
     Indication: COLITIS ULCERATIVE
     Route: 042
     Dates: start: 20151119

REACTIONS (3)
  - Colitis ulcerative [Not Recovered/Not Resolved]
  - Neurological symptom [Not Recovered/Not Resolved]
  - Herpes zoster [Not Recovered/Not Resolved]
